FAERS Safety Report 9089528 (Version 5)
Quarter: 2013Q2

REPORT INFORMATION
  Report Type: Spontaneous
  Country: US (occurrence: US)
  Receive Date: 20130131
  Receipt Date: 20130521
  Transmission Date: 20140414
  Serious: Yes (Death, Hospitalization, Other)
  Sender: FDA-Public Use
  Company Number: US-PFIZER INC-2013032121

PATIENT
  Age: 74 Year
  Sex: Male

DRUGS (94)
  1. INLYTA [Suspect]
     Indication: METASTATIC RENAL CELL CARCINOMA
     Dosage: 5 MG, 2X/DAY
     Route: 048
     Dates: start: 201301, end: 20130114
  2. COMBIGAN [Concomitant]
     Dosage: 0.2%/0.5% EYE DROPS 5 ML B.I.D
  3. ALLOPURINOL [Concomitant]
     Dosage: 300 MG, 1X/DAY
     Route: 048
  4. ASPIRIN [Concomitant]
     Dosage: 81 MG, 1X/DAY (EVERY DAY AFTER NOON)
     Route: 048
  5. LIPITOR [Concomitant]
     Dosage: 10 MG, AT BED TIME
  6. ASTELIN [Concomitant]
     Dosage: TWICE IN A DAY
  7. LOTRISONE [Concomitant]
     Dosage: TWICE IN A DAY
  8. WELLBUTRIN XL [Concomitant]
     Dosage: 150 MG, 1X/DAY
  9. WELLBUTRIN XL [Concomitant]
     Dosage: 300 MG, 1X/DAY ( 1 TABLET IN THE NORNING)
  10. VITAMIN D3 [Concomitant]
     Dosage: 1000 IU, 2X/DAY
  11. DECADRON [Concomitant]
     Dosage: 10 MG, 2X/DAY
     Route: 048
  12. DECADRON [Concomitant]
     Dosage: 06 MG, 3X/DAY
  13. SENOKOT-S [Concomitant]
     Dosage: 2 DF, 2X/DAY
     Route: 048
  14. LOVENOX [Concomitant]
     Dosage: 40 MG, AT BED TIME
     Route: 058
  15. ADVAIR DISKUS [Concomitant]
     Dosage: 100/50 ONE INHALATION , 2X/DAY
     Route: 045
  16. ADVAIR DISKUS [Concomitant]
     Dosage: 250 MG, 2X/DAY (1 PUFF)
     Route: 045
  17. LASIX [Concomitant]
     Dosage: 20 MG, 1X/DAY
     Route: 048
  18. MUCINEX [Concomitant]
     Dosage: 1200 MG, 2X/DAY
  19. HYDROCORTISONE [Concomitant]
     Dosage: 1 DF, 2X/DAY
     Route: 061
  20. HYDROCORTISONE [Concomitant]
     Dosage: 2.5 %, 2X/DAY
  21. LACTULOSE [Concomitant]
     Indication: CONSTIPATION
     Dosage: 20 G, 1X/DAY
     Route: 048
  22. XALATAN [Concomitant]
     Dosage: 0.005% 1 DROP Q.P.M
     Route: 047
  23. SYNTHROID [Concomitant]
     Dosage: 25 UG, 1X/DAY
  24. SYNTHROID [Concomitant]
     Dosage: 75 UG, 1X/DAY
     Route: 048
  25. LIDOCAINE [Concomitant]
     Dosage: 1 DF, 1X/DAY
  26. ZESTRIL [Concomitant]
     Dosage: 5 MG, AT BED TIME
     Route: 048
  27. MILK OF MAGNESIA [Concomitant]
     Dosage: 30 ML, 1X/DAY
  28. MAGNESIUM OXIDE [Concomitant]
     Dosage: 400 MG, 1X/DAY
     Route: 048
  29. RITALIN [Concomitant]
     Dosage: 10 MG, 2X/DAY
  30. RITALIN [Concomitant]
     Dosage: 20 MG, 1X/DAY (1 CAPSULE IN THE MORNING)
  31. ZOFRAN ODT [Concomitant]
     Dosage: EVERY 8 HOURS
  32. OXYCONTIN [Concomitant]
     Dosage: 20 MG, 2X/DAY (EVERY 12 HOURS)
  33. MIRALAX [Concomitant]
     Dosage: 17 G, 1X/DAY (AS NEEDED)
     Route: 048
  34. METAMUCIL [Concomitant]
     Indication: CONSTIPATION
     Dosage: 2 DF (TEASPOONS), 1X/DAY
  35. BETAPACE [Concomitant]
     Dosage: 80 MG, 2X/DAY
     Route: 048
  36. ALDACTONE [Concomitant]
     Dosage: 25 MG, 1X/DAY
  37. EFEXOR XR [Concomitant]
     Dosage: 75 MG, 1X/DAY
  38. EFEXOR XR [Concomitant]
     Dosage: 75 MG, ALTERNATE DAY
  39. ALBUTEROL [Concomitant]
     Dosage: AS NEEDED (EVERY 6 HOURS)
  40. COMBIVENT [Concomitant]
     Dosage: 18MCG/103MCG, 2 PUFFS INHALED
     Route: 055
  41. COMBIVENT [Concomitant]
     Dosage: 2 PUFFS B.I.D. P.R.N
  42. XANAX [Concomitant]
     Indication: ANXIETY
     Dosage: 0.5 MG, AS NEEDED (EVERY 6 HOURS)
     Route: 048
  43. XANAX [Concomitant]
     Dosage: 0.5 MG, 2X/DAY
  44. DULCOLAX [Concomitant]
     Dosage: AS NEEDED
  45. COLACE [Concomitant]
     Dosage: 100 MG, 2X/DAY (P.R.N)
     Route: 048
  46. COLACE [Concomitant]
     Dosage: 200 MG, 2X/DAY P.R.N.
  47. HALDOL [Concomitant]
     Dosage: 1 MG, AS NEEDED (EVERY 12 HOURS)
  48. DILAUDID [Concomitant]
     Indication: PAIN
     Dosage: 0.5 MG, AS NEEDED (EVERY 3 HOURS)
     Route: 042
  49. DILAUDID [Concomitant]
     Dosage: 1 MG, AS NEEDED (EVERY 3 HOURS)
  50. MAGNESIUM SULFATE [Concomitant]
     Dosage: 2 G, AS NEEDED
  51. REGLAN [Concomitant]
     Dosage: 10 MG, AS NEEDED (EVERY 4 HOURS)
     Route: 048
  52. REGLAN [Concomitant]
     Dosage: 10 MG, 3X/DAY
  53. OXYIR [Concomitant]
     Dosage: 5 MG, AS NEEDED (EVERY 4 HOURS)
  54. OXYIR [Concomitant]
     Dosage: 10 MG, AS NEEDED (EVERY 4 HOURS)
  55. TIGAN [Concomitant]
     Indication: NAUSEA
     Dosage: 300 MG, 3X/DAY P.R.N
     Route: 048
  56. TIGAN [Concomitant]
     Indication: VOMITING
  57. AMBIEN [Concomitant]
     Dosage: 5 MG, AT BEDTIME
     Route: 048
  58. DURAGESIC [Concomitant]
     Dosage: 25 UG, EVERY 72 HOURS
  59. ADVAIR [Concomitant]
     Dosage: 100MCG/50MCG ONE INHALATION B.I.D
  60. SOTALOL [Concomitant]
     Dosage: 80 MG, 2X/DAY
  61. PERCOCET [Concomitant]
     Indication: PAIN
     Dosage: 5/325 Q.4. H. P.R.N.
     Route: 048
  62. PERCOCET [Concomitant]
     Indication: BACK PAIN
  63. PERCOCET [Concomitant]
     Indication: OSTEOARTHRITIS
  64. ATROVENT [Concomitant]
     Dosage: P.R.N.
  65. ZOFRAN [Concomitant]
     Dosage: 8 MG, UNK
     Route: 042
  66. LUNESTA [Concomitant]
     Indication: INSOMNIA
     Dosage: 3 MG, AT BED TIME P.R.N.
  67. LIDODERM PATCH [Concomitant]
     Dosage: 5% Q.24
  68. REFRESH [Concomitant]
     Dosage: 1 DROP EACH EYE Q.I.D
     Route: 047
  69. KLONOPIN [Concomitant]
     Dosage: 0.5 MG, 1X/DAY
     Route: 048
  70. LEXAPRO [Concomitant]
     Dosage: 20 MG, 1X/DAY
     Route: 048
  71. ZOCOR [Concomitant]
     Dosage: 20 MG, 1X/DAY
     Route: 048
  72. ZYPREXA [Concomitant]
     Dosage: 2.5 MG, 1X/DAY
     Route: 048
  73. MELATONIN [Concomitant]
     Dosage: UNK (NIGHTLY)
  74. CLOBETASOL [Concomitant]
     Dosage: UNK
  75. DOCUSATE SODIUM [Concomitant]
     Dosage: 200 MG, 2X/DAY (2 CAPSULES)
  76. OMEGA 3 [Concomitant]
     Dosage: 1000 MG, 2X/DAY (1 CAPSULE)
  77. ASTEPRO [Concomitant]
     Dosage: 0.15 %, 2X/DAY (2 SPRAYS)
     Dates: end: 20121207
  78. SARNA [Concomitant]
     Dosage: 1 DF, AS NEEDED
  79. BENEFIBER [Concomitant]
     Dosage: UNK
  80. LEVOTHYROXINE SODIUM [Concomitant]
     Dosage: 25 UG, 1X/DAY (1 TABLET ON AN EMPTY STOMACH IN THE MORNING)
  81. BYSTOLIC [Concomitant]
     Dosage: 7.5 MG, 1X/DAY (1 TABLET)
  82. PRISTIQ [Concomitant]
     Dosage: 50 MG, ALTERNATE DAY (1 TABLET)
  83. BACITRACIN [Concomitant]
     Dosage: 500 UNIT/GM, 2-4 TIMES DAILY
  84. VICODIN [Concomitant]
     Dosage: UNK, 5/50 ONE BID
  85. MEDROL [Concomitant]
     Dosage: UNK
  86. AFRIN NASAL SPRAY [Concomitant]
     Dosage: 137 UG, 2X/DAY (INHALE 2 SPRAYS)
     Route: 045
  87. BETAMETHASONE/CLOTRIMAZOLE [Concomitant]
     Dosage: 0.05 PERCENT/1 % (FACE AND NECK B.I.D)
  88. DICYCLOMINE [Concomitant]
     Dosage: 20 MG, 4X/DAY
     Route: 048
  89. GUAIFENESIN [Concomitant]
     Dosage: 1200 MG, 2X/DAY
     Route: 048
  90. VIGAMOX [Concomitant]
     Dosage: 0.5 %, UNK (BILATERAL EYES Q. 4 TO 6 HOURS)
     Route: 047
  91. CLINDAMYCIN [Concomitant]
     Dosage: 600 MG, AS NEEDED (DAILY 1 HOUR PRIOR TO DENTAL APPOINTMENT)
     Route: 048
  92. PSYLLIUM HUSK [Concomitant]
     Dosage: 3.4 GM/5.8 GM, 2 TEASPOONS DAILY IN 4 OUNCES OF WATER P.R.N
     Route: 048
  93. VALERIAAN [Concomitant]
     Dosage: 2 CAPSULE, P.R.N AT 3.00 A.M
     Route: 048
  94. SYSTANE [Concomitant]
     Dosage: UNK, (BILATERAL EYES Q.I.D)
     Route: 047

REACTIONS (25)
  - Disease progression [Fatal]
  - Renal cell carcinoma [Fatal]
  - Pain [Unknown]
  - Bradycardia [Unknown]
  - Hypotension [Unknown]
  - Cardiac failure congestive [Unknown]
  - Back pain [Unknown]
  - Arthralgia [Unknown]
  - Oedema peripheral [Unknown]
  - Pain in extremity [Unknown]
  - Weight decreased [Unknown]
  - Hypertension [Unknown]
  - Flatulence [Unknown]
  - Performance status decreased [Unknown]
  - Fatigue [Unknown]
  - Decreased appetite [Unknown]
  - Somnolence [Unknown]
  - Nausea [Not Recovered/Not Resolved]
  - Electrocardiogram abnormal [Unknown]
  - Chronic obstructive pulmonary disease [Unknown]
  - Hypokalaemia [Unknown]
  - Dehydration [Unknown]
  - Hypomagnesaemia [Unknown]
  - Gait disturbance [Not Recovered/Not Resolved]
  - Chest pain [Unknown]
